FAERS Safety Report 7576662-7 (Version None)
Quarter: 2011Q2

REPORT INFORMATION
  Report Type: 
  Country: None (occurrence: None)
  Receive Date: 20110628
  Receipt Date: 20110610
  Transmission Date: 20111010
  Serious: Yes (Hospitalization, Other)
  Sender: FDA-Public Use
  Company Number: US-BAYER-2011-043972

PATIENT
  Age: 25 Year
  Sex: Female
  Weight: 54.422 kg

DRUGS (6)
  1. DROSPIRENONE AND ETHINYL ESTRADIOL [Suspect]
     Indication: CONTRACEPTION
     Dosage: UNK
     Dates: start: 20080701, end: 20091101
  2. LOESTRIN 1.5/30 [Concomitant]
     Dosage: UNK
     Dates: start: 20090101
  3. YASMIN [Suspect]
     Indication: CONTRACEPTION
     Dosage: UNK
     Dates: start: 20040601, end: 20080101
  4. IBUPROFEN [Concomitant]
     Dosage: UNK
     Dates: start: 19950101
  5. ALLEGRA [Concomitant]
  6. ALBUTEROL SULFATE AUTOHALER [Concomitant]
     Indication: ASTHMA
     Dosage: UNK UNK, PRN

REACTIONS (5)
  - PROCEDURAL PAIN [None]
  - PROCEDURAL VOMITING [None]
  - CHOLECYSTITIS CHRONIC [None]
  - RECTAL FISSURE [None]
  - POST CHOLECYSTECTOMY SYNDROME [None]
